FAERS Safety Report 26034838 (Version 1)
Quarter: 2025Q4

REPORT INFORMATION
  Report Type: Report from Study
  Country: IN (occurrence: IN)
  Receive Date: 20251112
  Receipt Date: 20251112
  Transmission Date: 20260117
  Serious: Yes (Other)
  Sender: NOVARTIS
  Company Number: IN-002147023-NVSC2023IN103816

PATIENT
  Age: 66 Year
  Sex: Male

DRUGS (8)
  1. TASIGNA [Suspect]
     Active Substance: NILOTINIB
     Indication: Chronic myeloid leukaemia
     Dosage: 300 MG, BID
     Route: 048
     Dates: start: 20221006
  2. TASIGNA [Suspect]
     Active Substance: NILOTINIB
     Dosage: 300 MG, BID
     Route: 048
     Dates: start: 20230425
  3. TASIGNA [Suspect]
     Active Substance: NILOTINIB
     Dosage: 300 MG, BID
     Route: 048
     Dates: start: 20230712
  4. TASIGNA [Suspect]
     Active Substance: NILOTINIB
     Dosage: 150 MG, BID
     Route: 048
  5. Thyrox [Concomitant]
     Indication: Chronic myeloid leukaemia
     Dosage: 37.5 MG, QD
     Route: 048
     Dates: start: 20230425
  6. Thyrox [Concomitant]
     Dosage: 37.5 MG, QD
     Route: 048
     Dates: start: 20230712
  7. ASPIRIN\ATORVASTATIN [Concomitant]
     Active Substance: ASPIRIN\ATORVASTATIN
     Indication: Chronic myeloid leukaemia
     Dosage: UNK (ORAL TABLET) (150/20)
     Route: 048
     Dates: start: 20230425
  8. ASPIRIN\ATORVASTATIN [Concomitant]
     Active Substance: ASPIRIN\ATORVASTATIN
     Dosage: 37.5 MG, QD (150/20)
     Route: 048
     Dates: start: 20230712

REACTIONS (26)
  - Angina unstable [Unknown]
  - Chest discomfort [Unknown]
  - Chest pain [Unknown]
  - Dyspnoea [Unknown]
  - Choking [Unknown]
  - Blood triglycerides abnormal [Unknown]
  - Haemoglobin abnormal [Unknown]
  - Blood pressure abnormal [Unknown]
  - Blood creatine abnormal [Unknown]
  - Blood glucose abnormal [Unknown]
  - Glomerular filtration rate decreased [Unknown]
  - Lymphocyte count abnormal [Unknown]
  - Diabetic retinopathy [Unknown]
  - Blood potassium abnormal [Unknown]
  - Blood thyroid stimulating hormone abnormal [Unknown]
  - Red blood cell count abnormal [Unknown]
  - White blood cell count abnormal [Unknown]
  - Platelet count abnormal [Unknown]
  - Blood alkaline phosphatase increased [Unknown]
  - Glycosylated haemoglobin increased [Not Recovered/Not Resolved]
  - Respiratory rate increased [Unknown]
  - Blood glucose increased [Not Recovered/Not Resolved]
  - Blood urea increased [Not Recovered/Not Resolved]
  - Blood creatinine increased [Not Recovered/Not Resolved]
  - Blood pressure increased [Not Recovered/Not Resolved]
  - Pruritus [Recovering/Resolving]

NARRATIVE: CASE EVENT DATE: 20230425
